FAERS Safety Report 22660161 (Version 1)
Quarter: 2023Q2

REPORT INFORMATION
  Report Type: Spontaneous
  Country: US (occurrence: None)
  Receive Date: 20230630
  Receipt Date: 20230630
  Transmission Date: 20230722
  Serious: Yes (Hospitalization)
  Sender: FDA-Public Use
  Company Number: None

PATIENT
  Sex: Male

DRUGS (4)
  1. ABIRATERONE [Suspect]
     Active Substance: ABIRATERONE
  2. FENTANYL [Suspect]
     Active Substance: FENTANYL
  3. OXYCODONE [Suspect]
     Active Substance: OXYCODONE
  4. LUPRON [Suspect]
     Active Substance: LEUPROLIDE ACETATE
     Dosage: FREQUENCY : DAILY;?
     Route: 048

REACTIONS (6)
  - Overdose [None]
  - Unresponsive to stimuli [None]
  - Pain [None]
  - Haematological infection [None]
  - Therapy interrupted [None]
  - Hot flush [None]
